FAERS Safety Report 9320823 (Version 2)
Quarter: 2013Q2

REPORT INFORMATION
  Report Type: Spontaneous
  Country: GB (occurrence: None)
  Receive Date: 20130528
  Receipt Date: 20130531
  Transmission Date: 20140414
  Serious: Yes (Disabling)
  Sender: FDA-Public Use
  Company Number: AUR-APL-2013-04255

PATIENT
  Age: 54 Year
  Sex: Male
  Weight: 119 kg

DRUGS (1)
  1. PIOGLITAZONE [Suspect]
     Indication: PRODUCT USED FOR UNKNOWN INDICATION
     Dates: start: 201205, end: 20130310

REACTIONS (3)
  - Blister [None]
  - Local swelling [None]
  - Pain in extremity [None]
